FAERS Safety Report 4903346-3 (Version None)
Quarter: 2006Q1

REPORT INFORMATION
  Report Type: 
  Country: None (occurrence: None)
  Receive Date: 20060206
  Receipt Date: 20060206
  Transmission Date: 20060701
  Serious: Yes (Hospitalization)
  Sender: FDA-Public Use
  Company Number: None

PATIENT
  Age: 54 Year
  Sex: Male
  Weight: 52.6173 kg

DRUGS (1)
  1. ZOLENDRONIC ACID 4 MG [Suspect]
     Indication: PROSTATE CANCER
     Dosage: 4MG IV QMONTH
     Route: 042
     Dates: end: 20051001

REACTIONS (3)
  - BLOOD PRESSURE DECREASED [None]
  - OSTEOMYELITIS [None]
  - OSTEONECROSIS [None]
